FAERS Safety Report 23098501 (Version 3)
Quarter: 2023Q4

REPORT INFORMATION
  Report Type: Spontaneous
  Country: AU (occurrence: AU)
  Receive Date: 20231023
  Receipt Date: 20231219
  Transmission Date: 20240110
  Serious: Yes (Death, Hospitalization, Other)
  Sender: FDA-Public Use
  Company Number: AU-AstraZeneca-2023-38872

PATIENT
  Age: 41 Year
  Sex: Female

DRUGS (2)
  1. TRASTUZUMAB DERUXTECAN [Suspect]
     Active Substance: TRASTUZUMAB DERUXTECAN
     Indication: Breast cancer metastatic
     Dosage: 5.4 MG/KG
     Route: 042
     Dates: start: 20230905
  2. TRASTUZUMAB DERUXTECAN [Suspect]
     Active Substance: TRASTUZUMAB DERUXTECAN
     Indication: HER2 positive breast cancer
     Dosage: 4.4 MG/KG
     Route: 042
     Dates: end: 20231013

REACTIONS (4)
  - Interstitial lung disease [Fatal]
  - Superinfection [Fatal]
  - Malignant neoplasm progression [Fatal]
  - Pneumonitis [Fatal]

NARRATIVE: CASE EVENT DATE: 20231009
